FAERS Safety Report 9598835 (Version 1)
Quarter: 2013Q4

REPORT INFORMATION
  Report Type: Spontaneous
  Country: US (occurrence: US)
  Receive Date: 20131004
  Receipt Date: 20131004
  Transmission Date: 20140711
  Serious: No
  Sender: FDA-Public Use
  Company Number: US-AMGEN-USASP2013026499

PATIENT
  Age: 44 Year
  Sex: Female

DRUGS (1)
  1. ENBREL [Suspect]
     Indication: RHEUMATOID ARTHRITIS
     Dosage: 50 MG, UD
     Route: 058
     Dates: start: 2005

REACTIONS (6)
  - Contusion [Unknown]
  - Erythema [Unknown]
  - Pruritus [Unknown]
  - Localised oedema [Unknown]
  - Visual impairment [Unknown]
  - Dyspnoea [Unknown]
